FAERS Safety Report 5670449-8 (Version None)
Quarter: 2008Q1

REPORT INFORMATION
  Report Type: 
  Country: None (occurrence: None)
  Receive Date: 20080318
  Receipt Date: 20080314
  Transmission Date: 20080703
  Serious: Yes (Hospitalization)
  Sender: FDA-Public Use
  Company Number: US-BRISTOL-MYERS SQUIBB COMPANY-13967914

PATIENT
  Age: 76 Year
  Sex: Female
  Weight: 104 kg

DRUGS (10)
  1. TEQUIN [Suspect]
     Indication: URINARY TRACT INFECTION
  2. ALLOPURINOL [Concomitant]
     Route: 048
  3. AMARYL [Concomitant]
     Route: 048
  4. AMITRIPTYLINE HCL [Concomitant]
     Dosage: EVERY NIGHT
     Route: 048
  5. AVAPRO [Concomitant]
     Route: 048
  6. COUMADIN [Concomitant]
     Dosage: DOSAGE FORM: 2.5 MG ON MONDAY, WENDESDAY, FRIDAY AND SUNDAY; 5 MG ON TUESDAY, THURSDAY AND SATURDAY.
     Route: 048
  7. ENALAPRIL MALEATE [Concomitant]
     Route: 048
  8. NORVASC [Concomitant]
     Route: 048
  9. TYLENOL (CAPLET) [Concomitant]
     Indication: PAIN
     Dosage: DOSAGE FORM:1-2; FOUR TIMES DAILY OR AS NECESSARY FOR PAIN
     Route: 048
  10. LASIX [Concomitant]
     Route: 048

REACTIONS (1)
  - SHOCK HYPOGLYCAEMIC [None]
